FAERS Safety Report 23069259 (Version 1)
Quarter: 2023Q4

REPORT INFORMATION
  Report Type: Spontaneous
  Country: RU (occurrence: RU)
  Receive Date: 20231016
  Receipt Date: 20231016
  Transmission Date: 20240110
  Serious: Yes (Hospitalization)
  Sender: FDA-Public Use
  Company Number: RU-PFIZER INC-202300317195

PATIENT
  Age: 50 Year
  Sex: Female

DRUGS (1)
  1. TAFAMIDIS MEGLUMINE [Suspect]
     Active Substance: TAFAMIDIS MEGLUMINE
     Indication: Amyloidosis
     Dosage: 20 MG, 1X/DAY
     Dates: start: 202111, end: 202212

REACTIONS (1)
  - Multi-organ disorder [Unknown]
